FAERS Safety Report 8516242-X (Version None)
Quarter: 2012Q3

REPORT INFORMATION
  Report Type: 
  Country: None (occurrence: None)
  Receive Date: 20120717
  Receipt Date: 20120709
  Transmission Date: 20120928
  Serious: Yes (Other)
  Sender: FDA-Public Use
  Company Number: KR-TEVA-347551ISR

PATIENT
  Age: 49 Year
  Sex: Female

DRUGS (5)
  1. IMATINIB MESYLATE [Suspect]
     Dosage: 400 MILLIGRAM; ON INDUCTION DAY 29
  2. CYTARABINE [Concomitant]
     Dosage: ON INDUCTION DAY 29
  3. CISPLATIN [Suspect]
     Indication: ENDOMETRIAL CANCER
     Dosage: 3 CYCLES
  4. ADRIAMYCIN PFS [Suspect]
     Indication: ENDOMETRIAL CANCER
     Dosage: 3 CYCLES
  5. IDARUBICIN HCL [Concomitant]
     Dosage: ON INDUCTION DAY 29

REACTIONS (2)
  - GASTROINTESTINAL DISORDER [None]
  - ACUTE LEUKAEMIA [None]
